FAERS Safety Report 8220136-7 (Version None)
Quarter: 2012Q1

REPORT INFORMATION
  Report Type: 
  Country: None (occurrence: None)
  Receive Date: 20120315
  Receipt Date: 20120229
  Transmission Date: 20120608
  Serious: Yes (Other)
  Sender: FDA-Public Use
  Company Number: US-1190984

PATIENT
  Age: 52 Year
  Sex: Male

DRUGS (1)
  1. PREDNISOLONE ACETATE [Suspect]
     Indication: INFLAMMATION
     Dosage: FOUR TIMES PER DAY OPHTHALMIC, TWICE DAILY OPHTHALMIC
     Route: 047

REACTIONS (8)
  - VISUAL ACUITY REDUCED [None]
  - EYE PAIN [None]
  - CORNEAL INFILTRATES [None]
  - ENDOPHTHALMITIS [None]
  - KERATITIS BACTERIAL [None]
  - BLEPHARITIS [None]
  - EYE INFECTION STAPHYLOCOCCAL [None]
  - HYPOPYON [None]
